FAERS Safety Report 4634860-6 (Version None)
Quarter: 2005Q2

REPORT INFORMATION
  Report Type: 
  Country: None (occurrence: None)
  Receive Date: 20050412
  Receipt Date: 20050329
  Transmission Date: 20051028
  Serious: Yes (Other)
  Sender: FDA-Public Use
  Company Number: CH-2004-030353

PATIENT
  Age: 30 Year
  Sex: Female

DRUGS (5)
  1. MIRENA [Suspect]
     Indication: CONTRACEPTION
     Dosage: 20 UG/DAY, CONT, INTRA-UTERINE
     Route: 015
     Dates: start: 20010301, end: 20040820
  2. DIPYRONE TAB [Concomitant]
  3. IBUPROFEN [Concomitant]
  4. SALICYLATES (SALICYLATES) [Concomitant]
  5. ACETYLCYSTEINE [Concomitant]

REACTIONS (4)
  - BLOOD HUMAN CHORIONIC GONADOTROPIN DECREASED [None]
  - COMPLICATION OF PREGNANCY [None]
  - DRUG EXPOSURE DURING PREGNANCY [None]
  - PREGNANCY WITH CONTRACEPTIVE DEVICE [None]
